FAERS Safety Report 4506415-5 (Version None)
Quarter: 2004Q4

REPORT INFORMATION
  Report Type: 
  Country: None (occurrence: None)
  Receive Date: 20041025
  Receipt Date: 20040729
  Transmission Date: 20050328
  Serious: Yes (Hospitalization, Other)
  Sender: FDA-Public Use
  Company Number: US-JNJFOC-20040800149

PATIENT
  Age: 47 Year
  Sex: Female
  Weight: 100.2449 kg

DRUGS (4)
  1. INFLIXIMAB (INFLIXIMAB, RECOMBINANT) LYOPHILIZED POWDER [Suspect]
     Indication: CROHN'S DISEASE
     Dosage: 5 MG/KG, INTRAVENOUS
     Route: 042
     Dates: start: 19990930
  2. ANTIBIOTICS (ANTIBIOTICS) [Suspect]
     Indication: CROHN'S DISEASE
  3. PREDNISONE [Suspect]
     Indication: CROHN'S DISEASE
  4. NARCOTIC ANALGESIC (ANALGESICS [Concomitant]

REACTIONS (3)
  - CLOSTRIDIAL INFECTION [None]
  - CONDITION AGGRAVATED [None]
  - CROHN'S DISEASE [None]
